FAERS Safety Report 24685837 (Version 1)
Quarter: 2024Q4

REPORT INFORMATION
  Report Type: Report from Study
  Country: US (occurrence: US)
  Receive Date: 20241202
  Receipt Date: 20241202
  Transmission Date: 20250115
  Serious: Yes (Other)
  Sender: BLUEBIRD BIO
  Company Number: US-BLUEBIRD BIO-US-BBB-24-00025

PATIENT
  Age: 22 Year
  Sex: Male

DRUGS (3)
  1. ZYNTEGLO [Suspect]
     Active Substance: BETIBEGLOGENE AUTOTEMCEL
     Indication: Thalassaemia beta
     Dosage: 7.5 X 10^6 CD34+ CELLS/KG, SINGLE
     Route: 042
  2. BUSULFAN [Suspect]
     Active Substance: BUSULFAN
     Indication: Bone marrow conditioning regimen
     Dosage: UNK, UNK
     Route: 065
  3. UNSPECIFIED INGREDIENT [Suspect]
     Active Substance: UNSPECIFIED INGREDIENT
     Indication: Analgesic therapy
     Dosage: UNK, UNK
     Route: 065

REACTIONS (7)
  - Subarachnoid haemorrhage [Recovered/Resolved]
  - Mucocutaneous haemorrhage [Recovered/Resolved]
  - Mental status changes [Recovering/Resolving]
  - Platelet count decreased [Recovering/Resolving]
  - Cytomegalovirus infection [Recovered/Resolved]
  - Hyperbilirubinaemia [Unknown]
  - Mucosal inflammation [Recovering/Resolving]
